FAERS Safety Report 6357097-1 (Version None)
Quarter: 2009Q3

REPORT INFORMATION
  Report Type: 
  Country: None (occurrence: None)
  Receive Date: 20090910
  Receipt Date: 20090824
  Transmission Date: 20100115
  Serious: Yes (Other)
  Sender: FDA-Public Use
  Company Number: 1-9631734

PATIENT
  Age: 20 Year
  Sex: Female

DRUGS (5)
  1. AMPHETAMINE SALTS TABLET [Suspect]
     Indication: ATTENTION DEFICIT/HYPERACTIVITY DISORDER
     Dosage: 40 MG DAILY, ORAL
     Route: 048
  2. METHYLPHENIDATE HCL [Suspect]
     Indication: ATTENTION DEFICIT/HYPERACTIVITY DISORDER
     Dosage: ORAL
     Route: 048
  3. LORATADINE [Concomitant]
  4. IBUPROFEN [Concomitant]
  5. UNSPECIFIED ORAL CONTRACEPTIVE [Concomitant]

REACTIONS (3)
  - ANTIBODY TEST POSITIVE [None]
  - LIVEDO RETICULARIS [None]
  - SJOGREN'S SYNDROME [None]
